FAERS Safety Report 12916569 (Version 1)
Quarter: 2016Q4

REPORT INFORMATION
  Report Type: Spontaneous
  Country: US (occurrence: US)
  Receive Date: 20161107
  Receipt Date: 20161107
  Transmission Date: 20170207
  Serious: No
  Sender: FDA-Public Use
  Company Number: US-JAZZ-2016-US-016660

PATIENT
  Sex: Female

DRUGS (20)
  1. XYREM [Suspect]
     Active Substance: SODIUM OXYBATE
     Dosage: 7.5 G, BID
     Route: 048
     Dates: start: 201404
  2. AMBIEN [Concomitant]
     Active Substance: ZOLPIDEM TARTRATE
  3. INTERMEZZO [Concomitant]
     Active Substance: ZOLPIDEM TARTRATE
  4. XYREM [Suspect]
     Active Substance: SODIUM OXYBATE
     Indication: INSOMNIA
     Dosage: 3 G, BID
     Route: 048
     Dates: start: 200611, end: 200612
  5. CHLORAL HYDRATE [Concomitant]
     Active Substance: CHLORAL HYDRATE
  6. METHOCARBAMOL. [Concomitant]
     Active Substance: METHOCARBAMOL
  7. SONATA [Concomitant]
     Active Substance: ZALEPLON
  8. CLONAZEPAM. [Concomitant]
     Active Substance: CLONAZEPAM
  9. ESTRADIOL. [Concomitant]
     Active Substance: ESTRADIOL
  10. ZOLPIDEM TARTRATE. [Concomitant]
     Active Substance: ZOLPIDEM TARTRATE
  11. ALTERIL [Concomitant]
  12. XYREM [Suspect]
     Active Substance: SODIUM OXYBATE
     Dosage: DOSE ADJUSTMENTS
     Route: 048
     Dates: start: 200612, end: 201404
  13. MIRTAZAPINE. [Concomitant]
     Active Substance: MIRTAZAPINE
  14. LOSARTAN POTASSIUM. [Concomitant]
     Active Substance: LOSARTAN POTASSIUM
  15. XYREM [Suspect]
     Active Substance: SODIUM OXYBATE
     Indication: FIBROMYALGIA
     Dosage: 2.25 G, BID
     Route: 048
     Dates: start: 200502, end: 2005
  16. MUCINEX [Concomitant]
     Active Substance: GUAIFENESIN
  17. CARVEDILOL. [Concomitant]
     Active Substance: CARVEDILOL
  18. AMITRIPTYLINE HCL [Concomitant]
     Active Substance: AMITRIPTYLINE
  19. BELSOMRA [Concomitant]
     Active Substance: SUVOREXANT
  20. DOXYCYCLINE HYCLATE. [Concomitant]
     Active Substance: DOXYCYCLINE HYCLATE

REACTIONS (4)
  - Respiratory rate decreased [Unknown]
  - Panic attack [Unknown]
  - Incorrect dose administered [Unknown]
  - Feeling abnormal [Unknown]
